FAERS Safety Report 6192966-7 (Version None)
Quarter: 2009Q2

REPORT INFORMATION
  Report Type: 
  Country: None (occurrence: None)
  Receive Date: 20090518
  Receipt Date: 20090506
  Transmission Date: 20091009
  Serious: Yes (Hospitalization)
  Sender: FDA-Public Use
  Company Number: US-BIOGENIDEC-2009BI011575

PATIENT
  Sex: Female

DRUGS (1)
  1. AVONEX [Suspect]
     Indication: MULTIPLE SCLEROSIS
     Route: 030
     Dates: start: 20080814, end: 20090317

REACTIONS (4)
  - BLOOD GLUCOSE INCREASED [None]
  - IRON DEFICIENCY [None]
  - URINARY TRACT INFECTION [None]
  - UTERINE MASS [None]
